FAERS Safety Report 8003816-8 (Version None)
Quarter: 2011Q4

REPORT INFORMATION
  Report Type: 
  Country: None (occurrence: None)
  Receive Date: 20111222
  Receipt Date: 20111219
  Transmission Date: 20120403
  Serious: Yes (Death)
  Sender: FDA-Public Use
  Company Number: US-PFIZER INC-2011309974

PATIENT
  Age: 82 Year
  Sex: Male

DRUGS (7)
  1. PREGABALIN [Suspect]
     Dosage: UNK
     Route: 048
  2. CYCLOBENZAPRINE [Suspect]
     Dosage: UNK
     Route: 048
  3. ACETAMINOPHEN AND HYDROCODONE BITARTRATE [Suspect]
     Dosage: UNK
     Route: 048
  4. WARFARIN [Suspect]
     Dosage: UNK
     Route: 048
  5. AMLODIPINE BESYLATE [Suspect]
     Dosage: UNK
     Route: 048
  6. METHADONE [Suspect]
     Dosage: UNK
     Route: 048
  7. HYDROXYCHLOROQUINE [Suspect]
     Dosage: UNK
     Route: 048

REACTIONS (2)
  - COMPLETED SUICIDE [None]
  - TOXICITY TO VARIOUS AGENTS [None]
